FAERS Safety Report 6004336-2 (Version None)
Quarter: 2008Q4

REPORT INFORMATION
  Report Type: 
  Country: None (occurrence: None)
  Receive Date: 20081216
  Receipt Date: 20081209
  Transmission Date: 20090506
  Serious: Yes (Other)
  Sender: FDA-Public Use
  Company Number: US-BAYER-200840363NA

PATIENT
  Age: 72 Year
  Sex: Male

DRUGS (2)
  1. AVELOX [Suspect]
     Indication: RESPIRATORY TRACT INFECTION
  2. METFORMIN HCL [Concomitant]

REACTIONS (2)
  - BLOOD CREATININE INCREASED [None]
  - RENAL FAILURE [None]
